FAERS Safety Report 8953121 (Version 1)
Quarter: 2012Q4

REPORT INFORMATION
  Report Type: 
  Country: US (occurrence: US)
  Receive Date: 20121206
  Receipt Date: 20121206
  Transmission Date: 20130627
  Serious: No
  Sender: FDA-Public Use
  Company Number: US-009507513-1212USA001271

PATIENT
  Sex: Female

DRUGS (6)
  1. SAPHRIS [Suspect]
     Indication: WEIGHT INCREASED
     Dosage: 5 mg, bid
     Route: 060
     Dates: start: 201110, end: 201112
  2. PROZAC [Concomitant]
  3. DIAZEPAM [Concomitant]
  4. SIMVASTATIN [Concomitant]
  5. HYDROCHLOROTHIAZIDE [Concomitant]
  6. COGENTIN [Concomitant]

REACTIONS (2)
  - Anger [Recovered/Resolved]
  - Drug ineffective for unapproved indication [Unknown]
